FAERS Safety Report 4453475-6 (Version None)
Quarter: 2004Q3

REPORT INFORMATION
  Report Type: 
  Country: None (occurrence: None)
  Receive Date: 20040920
  Receipt Date: 20040909
  Transmission Date: 20050211
  Serious: Yes (Other)
  Sender: FDA-Public Use
  Company Number: CH-MERCK-0409CHE00025

PATIENT
  Age: 42 Year
  Sex: Male

DRUGS (5)
  1. CRIXIVAN [Suspect]
     Route: 048
  2. LAMIVUDINE [Concomitant]
     Route: 048
  3. METHADONE HYDROCHLORIDE [Suspect]
     Route: 048
  4. SULFAMETHOXAZOLE AND TRIMETHOPRIM [Suspect]
     Route: 048
  5. ZIDOVUDINE [Concomitant]
     Route: 048

REACTIONS (5)
  - DRUG INTERACTION [None]
  - ELECTROCARDIOGRAM QT PROLONGED [None]
  - HYPOMAGNESAEMIA [None]
  - TORSADE DE POINTES [None]
  - VENTRICULAR TACHYCARDIA [None]
